FAERS Safety Report 8737883 (Version 2)
Quarter: 2013Q2

REPORT INFORMATION
  Report Type: Spontaneous
  Country: JP (occurrence: JP)
  Receive Date: 20120823
  Receipt Date: 20130402
  Transmission Date: 20140414
  Serious: Yes (Hospitalization)
  Sender: FDA-Public Use
  Company Number: JP-009507513-1207JPN010233

PATIENT
  Age: 50 Year
  Sex: Male

DRUGS (7)
  1. REMERON [Suspect]
     Indication: DEPRESSION
     Dosage: 15 MG, QD
     Route: 048
     Dates: start: 20120601, end: 201206
  2. DOGMATYL [Suspect]
     Indication: DEPRESSION
     Dosage: 150 MG, QD
     Route: 048
     Dates: start: 20120425, end: 201206
  3. DEPROMEL [Suspect]
     Indication: DEPRESSION
     Dosage: 75 MG, QD
     Route: 048
     Dates: start: 20120425, end: 201206
  4. HALCION [Suspect]
     Indication: INSOMNIA
     Dosage: 0.5 MG, QD
     Route: 048
     Dates: start: 20120425, end: 201206
  5. HALCION [Suspect]
     Dosage: DOSAGE IS UNCERTAIN DURING A DAY.
     Route: 048
     Dates: start: 2012
  6. NAUZELIN [Suspect]
     Dosage: 30 MG, QD
     Route: 048
     Dates: start: 20120601, end: 201206
  7. VITAMEDIN [Concomitant]
     Dosage: 75 MG, QD
     Route: 048
     Dates: start: 20120601, end: 201206

REACTIONS (2)
  - Drug-induced liver injury [Recovered/Resolved]
  - Jaundice [Recovered/Resolved]
